FAERS Safety Report 10697168 (Version 1)
Quarter: 2015Q1

REPORT INFORMATION
  Report Type: Report from Study
  Country: FR (occurrence: FR)
  Receive Date: 20150108
  Receipt Date: 20150108
  Transmission Date: 20150721
  Serious: Yes (Hospitalization)
  Sender: FDA-Public Use
  Company Number: FR-TEVA-532122ISR

PATIENT
  Age: 73 Year
  Sex: Female
  Weight: 74 kg

DRUGS (3)
  1. TEVAGRASTIM 30 MUI/0.5 ML [Suspect]
     Active Substance: FILGRASTIM
     Indication: PROPHYLAXIS
     Route: 058
     Dates: start: 20141211
  2. GEMCITABINE [Concomitant]
     Active Substance: GEMCITABINE\GEMCITABINE HYDROCHLORIDE
     Indication: UTERINE CANCER
     Dosage: 900 MG/M2 DAILY;
     Route: 042
     Dates: start: 20141126
  3. TAXOTERE [Suspect]
     Active Substance: DOCETAXEL
     Indication: UTERINE CANCER
     Dosage: 100 MG/M2 DAILY;
     Route: 042
     Dates: start: 20141126

REACTIONS (1)
  - General physical health deterioration [Recovered/Resolved]

NARRATIVE: CASE EVENT DATE: 20141213
